FAERS Safety Report 24250065 (Version 1)
Quarter: 2024Q3

REPORT INFORMATION
  Report Type: Spontaneous
  Country: CA (occurrence: CA)
  Receive Date: 20240826
  Receipt Date: 20240826
  Transmission Date: 20241017
  Serious: Yes (Hospitalization)
  Sender: MYLAN
  Company Number: CA-MYLANLABS-2024M1078005

PATIENT
  Sex: Female
  Weight: 49 kg

DRUGS (13)
  1. VALPROIC ACID [Suspect]
     Active Substance: VALPROIC ACID
     Indication: Myoclonic epilepsy
     Dosage: 250 MILLIGRAM, BID (2 EVERY 1 DAYS)
     Route: 065
  2. PHENYTOIN [Suspect]
     Active Substance: PHENYTOIN
     Indication: Myoclonic epilepsy
     Dosage: 100 MILLIGRAM
     Route: 048
  3. PHENYTOIN [Suspect]
     Active Substance: PHENYTOIN
     Indication: Myoclonic epilepsy
     Dosage: 700 MILLIGRAM
     Route: 042
  4. LORAZEPAM [Suspect]
     Active Substance: LORAZEPAM
     Indication: Myoclonic epilepsy
     Dosage: 2 MILLIGRAM
     Route: 065
  5. LORAZEPAM [Suspect]
     Active Substance: LORAZEPAM
     Dosage: 1 MILLIGRAM
     Route: 065
  6. VANCOMYCIN [Concomitant]
     Active Substance: VANCOMYCIN
     Indication: Sepsis
     Dosage: 500 MILLIGRAM
     Route: 042
  7. VANCOMYCIN [Concomitant]
     Active Substance: VANCOMYCIN
     Indication: Dialysis
  8. CLOXACILLIN [Concomitant]
     Active Substance: CLOXACILLIN
     Indication: Sepsis
     Dosage: 1 GRAM, QID  (4 EVERY 1 DAYS)
     Route: 042
  9. CLOXACILLIN [Concomitant]
     Active Substance: CLOXACILLIN
     Dosage: 2 GRAM, QID  (4 EVERY 1 DAYS)
     Route: 042
  10. GABAPENTIN [Concomitant]
     Active Substance: GABAPENTIN
     Indication: Neuropathy peripheral
     Dosage: 300 MILLIGRAM
     Route: 065
  11. GABAPENTIN [Concomitant]
     Active Substance: GABAPENTIN
     Dosage: 300 MILLIGRAM, QD (EVERY 1 DAY)
     Route: 065
  12. HYDROMORPHONE [Concomitant]
     Active Substance: HYDROMORPHONE
     Indication: Pain
     Dosage: UNK (AS REQUIRED)
     Route: 048
  13. HYDROMORPHONE [Concomitant]
     Active Substance: HYDROMORPHONE
     Indication: Pain
     Dosage: UNK
     Route: 058

REACTIONS (1)
  - Therapeutic product effect incomplete [Unknown]
